FAERS Safety Report 5214961-4 (Version None)
Quarter: 2007Q1

REPORT INFORMATION
  Report Type: 
  Country: None (occurrence: None)
  Receive Date: 20070122
  Receipt Date: 20070110
  Transmission Date: 20070707
  Serious: Yes (Death, Other)
  Sender: FDA-Public Use
  Company Number: US-PFIZER INC-2005162361

PATIENT
  Sex: Female
  Weight: 92 kg

DRUGS (22)
  1. NEURONTIN [Suspect]
     Indication: PAIN
     Route: 048
  2. NEURONTIN [Suspect]
     Indication: CONVULSION
  3. NEURONTIN [Suspect]
     Indication: SYNCOPE
  4. PROPOXYPHENE HYDROCHLORIDE [Suspect]
     Indication: PAIN
     Route: 065
  5. BUTALBITAL [Suspect]
     Indication: HEADACHE
     Route: 065
  6. ALL OTHER THERAPEUTIC PRODUCTS [Concomitant]
     Indication: MIGRAINE
     Route: 030
  7. STADOL [Concomitant]
     Indication: MIGRAINE
     Route: 030
  8. ZYPREXA [Concomitant]
  9. XANAX [Concomitant]
  10. TRAMADOL HCL [Concomitant]
  11. PIROXICAM [Concomitant]
  12. PROMETHEGAN [Concomitant]
  13. EFFEXOR [Concomitant]
  14. CELEBREX [Concomitant]
     Indication: PAIN
  15. ULTRAM [Concomitant]
     Indication: PAIN
  16. ALPRAZOLAM [Concomitant]
     Indication: PAIN
  17. NAPRONTAG FLEX [Concomitant]
     Indication: MYALGIA
  18. AMBIEN [Concomitant]
     Indication: INSOMNIA
  19. WELLBUTRIN [Concomitant]
  20. DOXEPIN HCL [Concomitant]
     Indication: MIGRAINE
  21. NADOLOL [Concomitant]
     Indication: MIGRAINE
  22. PHRENILIN [Concomitant]
     Indication: HEADACHE

REACTIONS (7)
  - COMPLETED SUICIDE [None]
  - DEPRESSION [None]
  - DRUG INEFFECTIVE [None]
  - OVERDOSE [None]
  - POISONING [None]
  - STRESS [None]
  - SYNCOPE VASOVAGAL [None]
